FAERS Safety Report 6875780-6 (Version None)
Quarter: 2010Q3

REPORT INFORMATION
  Report Type: 
  Country: None (occurrence: None)
  Receive Date: 20100727
  Receipt Date: 20100716
  Transmission Date: 20110219
  Serious: Yes (Other)
  Sender: FDA-Public Use
  Company Number: JP-PFIZER INC-2010089958

PATIENT

DRUGS (3)
  1. NORVASC [Suspect]
  2. ALDACTONE [Suspect]
  3. HALCION [Suspect]

REACTIONS (1)
  - BRADYCARDIA [None]
